FAERS Safety Report 18684420 (Version 1)
Quarter: 2020Q4

REPORT INFORMATION
  Report Type: Spontaneous
  Country: US (occurrence: US)
  Receive Date: 20201230
  Receipt Date: 20201230
  Transmission Date: 20210114
  Serious: No
  Sender: FDA-Public Use
  Company Number: US-INDIVIOR US-INDV-126495-2020

PATIENT
  Age: 36 Year
  Sex: Female

DRUGS (1)
  1. SUBLOCADE [Suspect]
     Active Substance: BUPRENORPHINE
     Indication: DRUG DEPENDENCE
     Dosage: 300 MILLIGRAM, QMO (FIRST INJECTION)
     Route: 065
     Dates: start: 20200921

REACTIONS (7)
  - Haematoma muscle [Unknown]
  - Product administered at inappropriate site [Recovered/Resolved]
  - Drug abuse [Not Recovered/Not Resolved]
  - Confusional state [Recovering/Resolving]
  - Dysarthria [Recovering/Resolving]
  - Drug withdrawal syndrome [Recovering/Resolving]
  - Fatigue [Recovering/Resolving]

NARRATIVE: CASE EVENT DATE: 20200921
